FAERS Safety Report 13874129 (Version 1)
Quarter: 2017Q3

REPORT INFORMATION
  Report Type: Report from Study
  Country: US (occurrence: US)
  Receive Date: 20170816
  Receipt Date: 20170816
  Transmission Date: 20171127
  Serious: Yes (Death, Hospitalization)
  Sender: FDA-Public Use
  Company Number: US-ACTELION-A-NJ2017-157950

PATIENT
  Age: 84 Year
  Sex: Female
  Weight: 47.17 kg

DRUGS (4)
  1. VENTAVIS [Suspect]
     Active Substance: ILOPROST
     Indication: PULMONARY HYPERTENSION
     Dosage: 5.0 MCG, 6-9 TIMES PER DAY
     Route: 055
  2. NIFEDIPINE. [Concomitant]
     Active Substance: NIFEDIPINE
  3. LETAIRIS [Concomitant]
     Active Substance: AMBRISENTAN
  4. VENTAVIS [Suspect]
     Active Substance: ILOPROST
     Dosage: 5 MCG, 4 TIMES PER DAY
     Route: 055

REACTIONS (2)
  - Death [Fatal]
  - Pneumonia [Unknown]

NARRATIVE: CASE EVENT DATE: 20170806
